FAERS Safety Report 19394977 (Version 1)
Quarter: 2021Q2

REPORT INFORMATION
  Report Type: Spontaneous
  Country: US (occurrence: US)
  Receive Date: 20210609
  Receipt Date: 20210609
  Transmission Date: 20210717
  Serious: Yes (Hospitalization)
  Sender: FDA-Public Use
  Company Number: US-JNJFOC-20210607978

PATIENT
  Age: 67 Year
  Sex: Female

DRUGS (1)
  1. MOTRIN [Suspect]
     Active Substance: IBUPROFEN
     Indication: PAIN
     Dosage: 800 MG MORNING AND NIGHT
     Route: 065

REACTIONS (3)
  - Overdose [Unknown]
  - Peritonitis [Unknown]
  - Gastric ulcer perforation [Unknown]
